FAERS Safety Report 5621330-1 (Version None)
Quarter: 2008Q1

REPORT INFORMATION
  Report Type: 
  Country: None (occurrence: None)
  Receive Date: 20080211
  Receipt Date: 20080204
  Transmission Date: 20080703
  Serious: Yes (Other)
  Sender: FDA-Public Use
  Company Number: US-BAYER-200714601BWH

PATIENT
  Sex: Male

DRUGS (2)
  1. CIPRO [Suspect]
     Indication: OTORHINOLARYNGOLOGICAL SURGERY
     Route: 048
     Dates: start: 20071115, end: 20071116
  2. ANTIINFLAMMATORY [Concomitant]
     Indication: DRUG USE FOR UNKNOWN INDICATION

REACTIONS (1)
  - CONVULSION [None]
